FAERS Safety Report 9001314 (Version 1)
Quarter: 2013Q1

REPORT INFORMATION
  Report Type: Spontaneous
  Country: US (occurrence: US)
  Receive Date: 20130107
  Receipt Date: 20130107
  Transmission Date: 20140127
  Serious: Yes (Other)
  Sender: FDA-Public Use
  Company Number: US-009507513-1301USA001931

PATIENT
  Age: 27 Year
  Sex: Male

DRUGS (6)
  1. SINGULAIR [Suspect]
     Dosage: 2 DF QD IH
  2. SEREVENT [Suspect]
  3. VENTOLIN (ALBUTEROL) [Suspect]
  4. CHLOR-TRIPOLON [Suspect]
  5. CELEXA [Suspect]
  6. PULMICORT [Suspect]
     Dosage: UNK

REACTIONS (6)
  - Visual impairment [Unknown]
  - Tremor [Unknown]
  - Panic reaction [Unknown]
  - Mental impairment [Unknown]
  - Loss of consciousness [Unknown]
  - Hypoaesthesia [Unknown]
